FAERS Safety Report 7222198-2 (Version None)
Quarter: 2011Q1

REPORT INFORMATION
  Report Type: 
  Country: None (occurrence: None)
  Receive Date: 20110112
  Receipt Date: 20110103
  Transmission Date: 20110831
  Serious: Yes (Hospitalization)
  Sender: FDA-Public Use
  Company Number: FR-ASTRAZENECA-2010SE25017

PATIENT
  Age: 32833 Day
  Sex: Female

DRUGS (8)
  1. FOSAMAX [Suspect]
     Dosage: 70 MG EVERY WEEK
     Route: 048
  2. SINEMET [Suspect]
     Indication: PARKINSONISM
     Route: 048
  3. FORLAX [Concomitant]
  4. MODOPAR LP [Concomitant]
     Indication: PARKINSONISM
     Route: 048
  5. CACIT VITAMINE D3 [Concomitant]
     Indication: HYPOVITAMINOSIS
     Route: 048
  6. MOPRAL [Suspect]
     Route: 048
     Dates: end: 20100429
  7. PAROXETINE [Suspect]
     Indication: DEPRESSION
     Route: 048
     Dates: end: 20100429
  8. DOLIPRANE [Concomitant]
     Indication: PAIN
     Route: 048

REACTIONS (2)
  - DIARRHOEA [None]
  - HYPOKALAEMIA [None]
